FAERS Safety Report 18029921 (Version 1)
Quarter: 2020Q3

REPORT INFORMATION
  Report Type: Spontaneous
  Country: US (occurrence: US)
  Receive Date: 20200715
  Receipt Date: 20200715
  Transmission Date: 20201103
  Serious: Yes (Other)
  Sender: FDA-Public Use
  Company Number: None

PATIENT
  Age: 36 Year

DRUGS (2)
  1. FERROUS FUMERATE [Suspect]
     Active Substance: FERROUS FUMARATE
  2. GAIA PLANT IRON [Suspect]
     Active Substance: FERROUS GLUCONATE\HERBALS

REACTIONS (1)
  - Drug ineffective [None]

NARRATIVE: CASE EVENT DATE: 20200715
